FAERS Safety Report 12239653 (Version 2)
Quarter: 2016Q2

REPORT INFORMATION
  Report Type: Spontaneous
  Country: KR (occurrence: KR)
  Receive Date: 20160405
  Receipt Date: 20160419
  Transmission Date: 20160815
  Serious: Yes (Life-Threatening, Other)
  Sender: FDA-Public Use
  Company Number: KR-ACTAVIS-2016-06948

PATIENT
  Age: 55 Year
  Sex: Male

DRUGS (4)
  1. CISPLATIN. [Suspect]
     Active Substance: CISPLATIN
     Indication: TRANSITIONAL CELL CARCINOMA
     Dosage: 35 MG/M2, CYCLICAL, FOUR CYCLES
     Route: 051
  2. CISPLATIN. [Suspect]
     Active Substance: CISPLATIN
     Dosage: CYCLICAL, 1 CYCLE
     Route: 051
  3. GEMCITABINE (ATLLC) [Suspect]
     Active Substance: GEMCITABINE HYDROCHLORIDE
     Indication: TRANSITIONAL CELL CARCINOMA
     Dosage: 1500 MG/M2, CYCLICAL, FOUR CYCLES
     Route: 051
  4. GEMCITABINE (ATLLC) [Suspect]
     Active Substance: GEMCITABINE HYDROCHLORIDE
     Dosage: CYCLICAL, 1 CYCLE
     Route: 051

REACTIONS (5)
  - Acute kidney injury [Not Recovered/Not Resolved]
  - Drug ineffective [Unknown]
  - Microangiopathic haemolytic anaemia [Unknown]
  - Thrombotic microangiopathy [Recovered/Resolved]
  - Thrombocytopenia [Recovering/Resolving]
